FAERS Safety Report 7558890-X (Version None)
Quarter: 2011Q2

REPORT INFORMATION
  Report Type: 
  Country: None (occurrence: None)
  Receive Date: 20110613
  Receipt Date: 20110530
  Transmission Date: 20111010
  Serious: Yes (Death)
  Sender: FDA-Public Use
  Company Number: MPS1-1000520

PATIENT
  Age: 17 Year
  Sex: Male
  Weight: 30 kg

DRUGS (1)
  1. ALDURAZYME [Suspect]
     Indication: MUCOPOLYSACCHARIDOSIS I
     Dosage: 100 U/KG, QW, INTRAVENOUS
     Route: 042
     Dates: start: 20040301

REACTIONS (6)
  - CARDIO-RESPIRATORY ARREST [None]
  - CEREBRAL ISCHAEMIA [None]
  - ACUTE RESPIRATORY DISTRESS SYNDROME [None]
  - COMA [None]
  - ASPHYXIA [None]
  - DEVICE OCCLUSION [None]
